FAERS Safety Report 6765752-4 (Version None)
Quarter: 2010Q2

REPORT INFORMATION
  Report Type: 
  Country: None (occurrence: None)
  Receive Date: 20100611
  Receipt Date: 20100527
  Transmission Date: 20101027
  Serious: Yes (Other)
  Sender: FDA-Public Use
  Company Number: ES-JNJFOC-20100602479

PATIENT
  Age: 67 Year
  Sex: Male

DRUGS (1)
  1. ZALDIAR [Suspect]
     Indication: CONTUSION
     Route: 048

REACTIONS (2)
  - HYPERSENSITIVITY [None]
  - OEDEMA PERIPHERAL [None]
